FAERS Safety Report 11213971 (Version 2)
Quarter: 2015Q3

REPORT INFORMATION
  Report Type: Spontaneous
  Country: US (occurrence: US)
  Receive Date: 20150623
  Receipt Date: 20150729
  Transmission Date: 20151125
  Serious: Yes (Hospitalization, Other)
  Sender: FDA-Public Use
  Company Number: US-009507513-1506USA011462

PATIENT
  Sex: Female

DRUGS (24)
  1. FOSAMAX [Suspect]
     Active Substance: ALENDRONATE SODIUM
     Indication: OSTEOPENIA
     Dosage: 70 MG, UNK
     Route: 048
     Dates: start: 20050211, end: 20080304
  2. CHOLECALCIFEROL [Concomitant]
     Active Substance: CHOLECALCIFEROL
     Dosage: UNK
     Route: 048
     Dates: start: 1990
  3. BIOTIN [Concomitant]
     Active Substance: BIOTIN
     Dosage: UNK
     Route: 048
     Dates: start: 1990
  4. MAGNESIUM (UNSPECIFIED) [Concomitant]
     Active Substance: MAGNESIUM
     Dosage: UNK, QD
     Route: 048
     Dates: start: 1990
  5. ZINC (UNSPECIFIED) [Concomitant]
     Dosage: UNK, QD
     Route: 048
     Dates: start: 1990
  6. PANTOTHENIC ACID [Concomitant]
     Active Substance: PANTOTHENIC ACID
     Dosage: UNK, QD
     Route: 048
     Dates: start: 1990
  7. COPPER (UNSPECIFIED) [Concomitant]
     Dosage: UNK
     Route: 048
     Dates: start: 1990
  8. ZEAXANTHIN [Concomitant]
     Active Substance: ZEAXANTHIN
     Dosage: UNK
     Route: 048
     Dates: start: 1990
  9. MOLYBDENUM [Concomitant]
     Active Substance: MOLYBDENUM
     Dosage: UNK
     Route: 048
     Dates: start: 1990
  10. SILICON [Concomitant]
     Active Substance: SILICON
     Dosage: UNK, QD
     Route: 048
     Dates: start: 1990
  11. VITAMIN E [Concomitant]
     Active Substance: .ALPHA.-TOCOPHEROL
     Dosage: UNK
     Route: 048
     Dates: start: 1990
  12. CALCIUM (UNSPECIFIED) [Concomitant]
     Active Substance: CALCIUM
     Dosage: UNK, QD
     Route: 048
     Dates: start: 1990
  13. SELENIUM (UNSPECIFIED) [Concomitant]
     Dosage: UNK, QD
     Route: 048
     Dates: start: 1990
  14. VITAMIN A [Concomitant]
     Active Substance: VITAMIN A
     Dosage: UNK UNK, QD
     Route: 048
     Dates: start: 1990
  15. RIBOFLAVIN [Concomitant]
     Active Substance: RIBOFLAVIN
     Dosage: UNK, QD
     Route: 048
     Dates: start: 1990
  16. CYANOCOBALAMIN. [Concomitant]
     Active Substance: CYANOCOBALAMIN
     Dosage: UNK, QD
     Route: 048
     Dates: start: 1990
  17. VANADIUM. [Concomitant]
     Active Substance: VANADIUM
     Dosage: UNK, QD
     Route: 048
     Dates: start: 1990
  18. XANTHOPHYLL [Concomitant]
     Dosage: UNK
     Route: 048
     Dates: start: 1990
  19. THIAMINE. [Concomitant]
     Active Substance: THIAMINE
     Dosage: UNK
     Route: 048
     Dates: start: 1990
  20. PYRIDOXINE [Concomitant]
     Active Substance: PYRIDOXINE
     Dosage: UNK
     Route: 048
     Dates: start: 1990
  21. BORON (UNSPECIFIED) [Concomitant]
     Dosage: UNK
     Route: 048
     Dates: start: 1990
  22. LYCOPENE [Concomitant]
     Active Substance: LYCOPENE
     Dosage: UNK
     Route: 048
     Dates: start: 1990
  23. ASCORBIC ACID. [Concomitant]
     Active Substance: ASCORBIC ACID
     Dosage: UNK UNK, QD
     Route: 048
     Dates: start: 1990
  24. NIACIN. [Concomitant]
     Active Substance: NIACIN
     Dosage: UNK, QD
     Route: 048
     Dates: start: 1990

REACTIONS (3)
  - Low turnover osteopathy [Unknown]
  - Femur fracture [Unknown]
  - Anxiety [Unknown]

NARRATIVE: CASE EVENT DATE: 2005
